FAERS Safety Report 13377939 (Version 1)
Quarter: 2017Q1

REPORT INFORMATION
  Report Type: Spontaneous
  Country: US (occurrence: US)
  Receive Date: 20170328
  Receipt Date: 20170328
  Transmission Date: 20170429
  Serious: Yes (Hospitalization)
  Sender: FDA-Public Use
  Company Number: US-TEIKOKU PHARMA USA-TPU2017-00164

PATIENT
  Sex: Male

DRUGS (27)
  1. NITROGLYCERINE [Concomitant]
     Active Substance: NITROGLYCERIN
     Indication: CARDIAC DISORDER
     Dates: start: 2008
  2. TAMSULOSIN [Concomitant]
     Active Substance: TAMSULOSIN
  3. LIDOCAINE PATCH [Suspect]
     Active Substance: LIDOCAINE
     Indication: POST HERPETIC NEURALGIA
     Dosage: TWO PATCHES APPLIED TO RIGHT HIP AND BUTTOCK ONCE A DAY
     Dates: start: 2010
  4. DESONIDE. [Concomitant]
     Active Substance: DESONIDE
     Indication: RASH
  5. METOCLOPRAMIDE. [Concomitant]
     Active Substance: METOCLOPRAMIDE
     Indication: DECREASED APPETITE
  6. MORPHINE SULFATE. [Concomitant]
     Active Substance: MORPHINE SULFATE
     Indication: POST HERPETIC NEURALGIA
  7. ISOSORBIDE MN [Concomitant]
     Active Substance: ISOSORBIDE MONONITRATE
  8. TETOCONAZOLE [Concomitant]
     Indication: RASH
  9. LYRICA [Concomitant]
     Active Substance: PREGABALIN
     Indication: POST HERPETIC NEURALGIA
     Dosage: 2 TABS AT NIGHT
  10. FISH OIL [Concomitant]
     Active Substance: FISH OIL
  11. MIRALAX [Concomitant]
     Active Substance: POLYETHYLENE GLYCOL 3350
     Indication: INFREQUENT BOWEL MOVEMENTS
  12. EXELON [Concomitant]
     Active Substance: RIVASTIGMINE TARTRATE
     Indication: AMNESIA
  13. ASPIRIN. [Concomitant]
     Active Substance: ASPIRIN
     Indication: MYOCARDIAL INFARCTION
     Dates: start: 2008
  14. VITAMIN D3 [Concomitant]
     Active Substance: CHOLECALCIFEROL
  15. COQ10 [Concomitant]
     Active Substance: UBIDECARENONE
     Route: 048
  16. PANTAPRAZOLE [Concomitant]
     Active Substance: PANTOPRAZOLE SODIUM
     Indication: GASTRIC DISORDER
  17. LISINOPRIL. [Concomitant]
     Active Substance: LISINOPRIL
     Indication: CARDIAC DISORDER
     Route: 048
  18. METOCLOPRAMIDE. [Concomitant]
     Active Substance: METOCLOPRAMIDE
     Indication: DYSPEPSIA
  19. METOPROLOL XL [Concomitant]
     Active Substance: METOPROLOL SUCCINATE
     Indication: CARDIAC DISORDER
     Dosage: 1.5 TABS
     Dates: start: 2008
  20. MORPHINE SULFATE. [Concomitant]
     Active Substance: MORPHINE SULFATE
     Indication: POST HERPETIC NEURALGIA
  21. VITAMIN D [Concomitant]
     Active Substance: CHOLECALCIFEROL
  22. TOPICORT [Concomitant]
     Active Substance: DESOXIMETASONE
     Indication: RASH
  23. SENNOSIDES DOCUSATE SODIUM [Concomitant]
     Indication: INFREQUENT BOWEL MOVEMENTS
  24. FLOMAX [Concomitant]
     Active Substance: TAMSULOSIN HYDROCHLORIDE
     Dosage: ONE CAPSULE PER DAY
  25. METOCLOPRAMIDE. [Concomitant]
     Active Substance: METOCLOPRAMIDE
     Indication: WEIGHT DECREASED
  26. RANITIDINE. [Concomitant]
     Active Substance: RANITIDINE
     Indication: DYSPEPSIA
  27. SIMVASTATIN. [Concomitant]
     Active Substance: SIMVASTATIN

REACTIONS (3)
  - Dyspepsia [Recovered/Resolved]
  - Shoulder arthroplasty [Recovered/Resolved]
  - Drug ineffective [Not Recovered/Not Resolved]
